FAERS Safety Report 6600634-X (Version None)
Quarter: 2010Q1

REPORT INFORMATION
  Report Type: 
  Country: None (occurrence: None)
  Receive Date: 20100223
  Receipt Date: 20100223
  Transmission Date: 20100710
  Serious: No
  Sender: FDA-Public Use
  Company Number: None

PATIENT
  Age: 74 Year
  Sex: Female
  Weight: 58.9676 kg

DRUGS (2)
  1. NUCYNTA [Suspect]
     Indication: PAIN
     Dosage: 1 AND 1 THREE HRS AFTER
     Dates: start: 20091218, end: 20100217
  2. TAPENTADOL [Suspect]

REACTIONS (10)
  - AMNESIA [None]
  - ASTHENIA [None]
  - DECREASED APPETITE [None]
  - DRY MOUTH [None]
  - DYSPNOEA [None]
  - HYPERHIDROSIS [None]
  - LYMPHADENOPATHY [None]
  - PHARYNGEAL OEDEMA [None]
  - SENSATION OF FOREIGN BODY [None]
  - SWOLLEN TONGUE [None]
